FAERS Safety Report 14125069 (Version 1)
Quarter: 2017Q4

REPORT INFORMATION
  Report Type: Spontaneous
  Country: US (occurrence: US)
  Receive Date: 20171025
  Receipt Date: 20171025
  Transmission Date: 20180321
  Serious: No
  Sender: FDA-Public Use
  Company Number: US-PERRIGO-16US022678

PATIENT
  Age: 39 Year
  Sex: Male
  Weight: 90.7 kg

DRUGS (1)
  1. NICOTINE POLACRILEX [Suspect]
     Active Substance: NICOTINE
     Indication: SMOKING CESSATION THERAPY
     Dosage: 4 MG, 4 TO 5 TIMES DAILY
     Route: 002
     Dates: start: 201611, end: 20161107

REACTIONS (3)
  - Throat irritation [Not Recovered/Not Resolved]
  - Eructation [Recovered/Resolved]
  - Cough [Not Recovered/Not Resolved]

NARRATIVE: CASE EVENT DATE: 201611
